FAERS Safety Report 6075209-4 (Version None)
Quarter: 2009Q1

REPORT INFORMATION
  Report Type: 
  Country: None (occurrence: None)
  Receive Date: 20090212
  Receipt Date: 20090205
  Transmission Date: 20090719
  Serious: Yes (Death, Hospitalization)
  Sender: FDA-Public Use
  Company Number: GB-AVENTIS-200911215GDDC

PATIENT
  Sex: Female

DRUGS (2)
  1. DOCETAXEL [Suspect]
     Indication: CHEMOTHERAPY
     Dosage: DOSE: UNK
     Route: 042
     Dates: start: 20080101
  2. ZANTAC [Suspect]
     Indication: DRUG HYPERSENSITIVITY
     Route: 042
     Dates: start: 20080101

REACTIONS (4)
  - CARDIAC ARREST [None]
  - DEATH [None]
  - DRUG HYPERSENSITIVITY [None]
  - HYPERSENSITIVITY [None]
